FAERS Safety Report 13497522 (Version 2)
Quarter: 2017Q3

REPORT INFORMATION
  Report Type: Report from Study
  Country: US (occurrence: US)
  Receive Date: 20170428
  Receipt Date: 20170728
  Transmission Date: 20171127
  Serious: Yes (Other)
  Sender: FDA-Public Use
  Company Number: US-TESARO, INC-US-2017TSO00034

PATIENT
  Age: 53 Year
  Sex: Male
  Weight: 115.2 kg

DRUGS (2)
  1. APALUTAMIDE [Suspect]
     Active Substance: APALUTAMIDE
     Indication: PROSTATE CANCER METASTATIC
     Dosage: 240 MG, QD
     Route: 048
     Dates: start: 20161109
  2. NIRAPARIB [Suspect]
     Active Substance: NIRAPARIB
     Indication: PROSTATE CANCER METASTATIC
     Dosage: 200 MG, QD
     Route: 048
     Dates: start: 20161109, end: 20170208

REACTIONS (2)
  - Ventricular extrasystoles [Recovering/Resolving]
  - Ventricular dyskinesia [Unknown]

NARRATIVE: CASE EVENT DATE: 20170202
